FAERS Safety Report 8842391 (Version 2)
Quarter: 2012Q4

REPORT INFORMATION
  Report Type: 
  Country: US (occurrence: None)
  Receive Date: 20121014
  Receipt Date: 20121014
  Transmission Date: 20130627
  Serious: Yes (Disabling, Other)
  Sender: FDA-Public Use
  Company Number: None

PATIENT
  Age: 56 Year
  Sex: Female
  Weight: 84.82 kg

DRUGS (2)
  1. METHYLPREDNISOLONE [Suspect]
     Indication: PAIN
     Dosage: 3 Epidural
     Route: 008
     Dates: start: 20120401, end: 20120929
  2. SOLUMEDROL(METHYLPREDNISOLONE SODIUM SUCCINATE) INFUSION [Suspect]

REACTIONS (16)
  - Headache [None]
  - Photophobia [None]
  - Dizziness [None]
  - Chills [None]
  - Nausea [None]
  - Vision blurred [None]
  - Pain [None]
  - Spinal pain [None]
  - Abasia [None]
  - Dysstasia [None]
  - Movement disorder [None]
  - Pain in extremity [None]
  - Drug ineffective [None]
  - Depression [None]
  - Suicidal ideation [None]
  - Product contamination [None]
